FAERS Safety Report 11882448 (Version 2)
Quarter: 2016Q1

REPORT INFORMATION
  Report Type: Report from Study
  Country: DE (occurrence: DE)
  Receive Date: 20151231
  Receipt Date: 20160224
  Transmission Date: 20160526
  Serious: Yes (Hospitalization)
  Sender: FDA-Public Use
  Company Number: DE-PFIZER INC-2015467343

PATIENT
  Age: 64 Year
  Sex: Female
  Weight: 70 kg

DRUGS (8)
  1. GEMTUZUMAB OZOGAMICIN [Suspect]
     Active Substance: GEMTUZUMAB OZOGAMICIN
     Indication: ACUTE MYELOID LEUKAEMIA
     Dosage: 5.3 MG, DAILY
     Dates: start: 20151125
  2. IDARUBICIN [Suspect]
     Active Substance: IDARUBICIN
     Indication: ACUTE MYELOID LEUKAEMIA
     Dosage: 18 MG, DAILY
     Dates: start: 20151125, end: 20151125
  3. ATRA [Suspect]
     Active Substance: TRETINOIN
     Indication: ACUTE MYELOID LEUKAEMIA
     Dosage: 80 MG, DAILY
     Dates: start: 20151130, end: 20151202
  4. ATRA [Suspect]
     Active Substance: TRETINOIN
     Dosage: 30 MG, DAILY
     Dates: start: 20151203, end: 20151215
  5. ETOPOSIDE. [Suspect]
     Active Substance: ETOPOSIDE
     Indication: ACUTE MYELOID LEUKAEMIA
     Dosage: 177 MG, DAILY
     Dates: start: 20151125, end: 20151125
  6. ETOPOSIDE. [Suspect]
     Active Substance: ETOPOSIDE
     Dosage: 177 MG, DAILY
     Dates: start: 20151127, end: 20151127
  7. IDARUBICIN [Suspect]
     Active Substance: IDARUBICIN
     Dosage: 18 MG, DAILY
     Dates: start: 20151127, end: 20151127
  8. CYTARABIN [Suspect]
     Active Substance: CYTARABINE
     Indication: ACUTE MYELOID LEUKAEMIA
     Dosage: 1700 MG, DAILY
     Dates: start: 20151125, end: 20151129

REACTIONS (1)
  - Ileus [Recovering/Resolving]

NARRATIVE: CASE EVENT DATE: 20151211
